FAERS Safety Report 8579968-8 (Version None)
Quarter: 2012Q3

REPORT INFORMATION
  Report Type: 
  Country: None (occurrence: None)
  Receive Date: 20120808
  Receipt Date: 20120802
  Transmission Date: 20120928
  Serious: Yes (Hospitalization)
  Sender: FDA-Public Use
  Company Number: PHHY2012DE067139

PATIENT
  Sex: Male
  Weight: 75 kg

DRUGS (1)
  1. CYCLOSPORINE [Suspect]
     Indication: PSORIASIS
     Dosage: 100 MG, TID
     Route: 048
     Dates: start: 20120228, end: 20120510

REACTIONS (3)
  - HYPERTENSION [None]
  - FATIGUE [None]
  - PERFORMANCE STATUS DECREASED [None]
